FAERS Safety Report 7635760-X (Version None)
Quarter: 2011Q3

REPORT INFORMATION
  Report Type: 
  Country: None (occurrence: None)
  Receive Date: 20110726
  Receipt Date: 20110718
  Transmission Date: 20111222
  Serious: Yes (Death)
  Sender: FDA-Public Use
  Company Number: FR-PFIZER INC-2011165526

PATIENT
  Age: 52 Year
  Sex: Male

DRUGS (12)
  1. SALBUTAMOL [Suspect]
     Indication: CHRONIC OBSTRUCTIVE PULMONARY DISEASE
     Dosage: 1 PUFF, 3X DAY
  2. PANTOPRAZOLE SODIUM [Suspect]
     Indication: ULCER
     Dosage: 40 MG, 2X/DAY
     Route: 048
     Dates: start: 20101101
  3. IPRATROPIUM BROMIDE [Suspect]
     Indication: CHRONIC OBSTRUCTIVE PULMONARY DISEASE
     Dosage: 1 PUFF, 3X DAY
  4. ALPRAZOLAM [Suspect]
     Indication: PRODUCT USED FOR UNKNOWN INDICATION
     Dosage: 0.5 MG, 1X/DAY
     Route: 048
     Dates: start: 20110115
  5. AMIODARONE HCL [Suspect]
     Indication: CARDIAC FAILURE
     Dosage: 200 MG, 1X/DAY
     Route: 048
     Dates: start: 20101101
  6. ACETAMINOPHEN [Suspect]
     Indication: PRODUCT USED FOR UNKNOWN INDICATION
     Dosage: UNK
     Route: 048
     Dates: start: 20110115
  7. COLCHICINE [Suspect]
     Indication: PRODUCT USED FOR UNKNOWN INDICATION
     Dosage: 1 UNIT, DAILY
     Route: 048
     Dates: start: 20110115
  8. ARIXTRA [Suspect]
     Indication: ATRIAL FIBRILLATION
     Dosage: 7.5 MG, 1X/DAY
     Route: 058
     Dates: start: 20101101
  9. DIGOXIN [Suspect]
     Indication: CARDIAC FAILURE
     Dosage: 0.125 MG, 1X/DAY
     Route: 048
     Dates: start: 20110105
  10. KETOPROFEN [Suspect]
     Indication: PRODUCT USED FOR UNKNOWN INDICATION
     Dosage: 100 MG, 1X/DAY
     Route: 048
     Dates: start: 20110115
  11. ALLOPURINOL [Suspect]
     Indication: GOUT
     Dosage: 100 MG, 1X/DAY
     Route: 048
  12. FERROUS SULFATE TAB [Suspect]
     Indication: ANAEMIA
     Dosage: 80 MG, 2X/DAY
     Route: 048
     Dates: start: 20101110

REACTIONS (2)
  - RETROPERITONEAL HAEMORRHAGE [None]
  - MYOCARDIAL INFARCTION [None]
